FAERS Safety Report 12652452 (Version 3)
Quarter: 2019Q4

REPORT INFORMATION
  Report Type: Spontaneous
  Country: US (occurrence: US)
  Receive Date: 20160815
  Receipt Date: 20191007
  Transmission Date: 20200122
  Serious: Yes (Other)
  Sender: FDA-Public Use
  Company Number: US-PFIZER INC-2016370892

PATIENT
  Sex: Female

DRUGS (1)
  1. CLINDAMYCIN. [Suspect]
     Active Substance: CLINDAMYCIN
     Dosage: UNK

REACTIONS (4)
  - Diarrhoea [Unknown]
  - Clostridium difficile infection [Unknown]
  - Drug hypersensitivity [Unknown]
  - Drug intolerance [Unknown]
